FAERS Safety Report 9557371 (Version 1)
Quarter: 2013Q3

REPORT INFORMATION
  Report Type: Spontaneous
  Country: US (occurrence: None)
  Receive Date: 20130726
  Receipt Date: 20130726
  Transmission Date: 20140515
  Serious: Yes (Hospitalization)
  Sender: FDA-Public Use
  Company Number: UTC-020872

PATIENT
  Age: 68 Year
  Sex: Female
  Weight: 84.5 kg

DRUGS (2)
  1. TYVASO [Suspect]
     Indication: COR PULMONALE CHRONIC
     Route: 055
     Dates: start: 20110819
  2. ADCIRCA (TADALAFIL) [Concomitant]

REACTIONS (1)
  - Syncope [None]
